FAERS Safety Report 4381589-8 (Version None)
Quarter: 2004Q2

REPORT INFORMATION
  Report Type: 
  Country: None (occurrence: None)
  Receive Date: 20040614
  Receipt Date: 20030717
  Transmission Date: 20050107
  Serious: Yes (Hospitalization)
  Sender: FDA-Public Use
  Company Number: WAES 0307USA02263

PATIENT
  Sex: Female

DRUGS (5)
  1. COZAAR [Suspect]
     Indication: HYPERTENSION
     Dosage: 50 MG/DAILY/PO
     Route: 048
     Dates: start: 20030601, end: 20030716
  2. ENDURONYL [Suspect]
  3. COREG [Concomitant]
  4. NORVASC [Concomitant]
  5. INSULIN [Concomitant]

REACTIONS (1)
  - OEDEMA PERIPHERAL [None]
